FAERS Safety Report 5316177-X (Version None)
Quarter: 2007Q2

REPORT INFORMATION
  Report Type: 
  Country: None (occurrence: None)
  Receive Date: 20070503
  Receipt Date: 20070423
  Transmission Date: 20071010
  Serious: Yes (Death, Other)
  Sender: FDA-Public Use
  Company Number: GB-SHR-GB-2007-002769

PATIENT
  Age: 68 Year
  Sex: Male

DRUGS (7)
  1. CAMPATH [Suspect]
     Dosage: 30 MG, DAY 0 + DAY +1(2DOSES)
     Route: 042
     Dates: start: 20050302, end: 20050303
  2. METHYLPREDNISOLONE 16MG TAB [Concomitant]
     Indication: PREMEDICATION
     Dosage: 500 MG, 1 DOSE
     Route: 042
  3. TACROLIMUS [Concomitant]
     Dosage: 1 MG, 2X/DAY
     Route: 048
     Dates: start: 20050302, end: 20050808
  4. RAPAMYCIN [Concomitant]
     Dosage: 4 MG, 1X/DAY
     Route: 048
  5. MYCOPHENOLATE MOFETIL [Concomitant]
     Dosage: 500 MG, 2X/DAY
     Route: 048
     Dates: start: 20050203, end: 20050624
  6. SEPTRIN [Concomitant]
     Indication: INFECTION PROPHYLAXIS
     Dosage: 480 MG, 1X/DAY
     Route: 048
     Dates: start: 20050302, end: 20050809
  7. OMEPRAZOLE [Concomitant]
     Indication: PROPHYLAXIS
     Dosage: 20 MG, 1X/DAY
     Dates: start: 20050203, end: 20050809

REACTIONS (2)
  - LYMPHOPROLIFERATIVE DISORDER [None]
  - SEPSIS [None]
